FAERS Safety Report 10216896 (Version 1)
Quarter: 2014Q2

REPORT INFORMATION
  Report Type: Spontaneous
  Country: DE (occurrence: DE)
  Receive Date: 20140604
  Receipt Date: 20140604
  Transmission Date: 20141212
  Serious: Yes (Hospitalization)
  Sender: FDA-Public Use
  Company Number: DE-GLAXOSMITHKLINE-D0083908A

PATIENT
  Sex: Female

DRUGS (4)
  1. BENLYSTA [Suspect]
     Indication: SYSTEMIC LUPUS ERYTHEMATOSUS
     Route: 042
     Dates: start: 201201
  2. KEPPRA [Concomitant]
     Route: 065
  3. LYRICA [Concomitant]
     Route: 048
  4. PREDNISOLON [Concomitant]
     Route: 065

REACTIONS (7)
  - Pain in extremity [Unknown]
  - Skin burning sensation [Unknown]
  - Pruritus [Unknown]
  - Depression [Unknown]
  - Panic attack [Unknown]
  - Pain [Unknown]
  - Pain [Unknown]
